FAERS Safety Report 6275945-0 (Version None)
Quarter: 2009Q3

REPORT INFORMATION
  Report Type: 
  Country: None (occurrence: None)
  Receive Date: 20090720
  Receipt Date: 20090708
  Transmission Date: 20100115
  Serious: Yes (Other)
  Sender: FDA-Public Use
  Company Number: 321291

PATIENT
  Sex: 0

DRUGS (7)
  1. CYTARABINE [Suspect]
     Indication: LANGERHANS' CELL GRANULOMATOSIS
     Dosage: 1 G/M2 2 HOURS FOR 5 CONSECUTIVE DAYS
  2. CLADRIBINE [Suspect]
     Indication: LANGERHANS' CELL GRANULOMATOSIS
     Dosage: 8.9 MG/M2 INTRAVENOUS DRIP
     Route: 041
  3. NEUPOGEN [Concomitant]
  4. RED BLOOD CELLS [Concomitant]
  5. PLATELETS [Concomitant]
  6. IMMUNE GLOBULIN NOS [Concomitant]
  7. PENTAMIDINE ISETHIONATE [Concomitant]

REACTIONS (8)
  - CD4/CD8 RATIO DECREASED [None]
  - FAILURE TO THRIVE [None]
  - PANCYTOPENIA [None]
  - PARAINFLUENZAE VIRUS INFECTION [None]
  - PSEUDOMONAL BACTERAEMIA [None]
  - PYREXIA [None]
  - STAPHYLOCOCCAL BACTERAEMIA [None]
  - URINARY TRACT INFECTION ENTEROCOCCAL [None]
